FAERS Safety Report 11218775 (Version 1)
Quarter: 2015Q2

REPORT INFORMATION
  Report Type: Spontaneous
  Country: JP (occurrence: JP)
  Receive Date: 20150625
  Receipt Date: 20150625
  Transmission Date: 20150821
  Serious: Yes (Hospitalization, Other)
  Sender: FDA-Public Use
  Company Number: JP-PFIZER INC-2015175712

PATIENT
  Age: 56 Year
  Sex: Male

DRUGS (1)
  1. INLYTA [Suspect]
     Active Substance: AXITINIB
     Indication: NEOPLASM MALIGNANT
     Route: 048

REACTIONS (5)
  - Asthenia [Unknown]
  - Neoplasm malignant [Unknown]
  - Cancer pain [Unknown]
  - Hyperglycaemia [Unknown]
  - Disease progression [Unknown]
